FAERS Safety Report 9927439 (Version 1)
Quarter: 2014Q1

REPORT INFORMATION
  Report Type: Spontaneous
  Country: NL (occurrence: NL)
  Receive Date: 20140227
  Receipt Date: 20140227
  Transmission Date: 20141002
  Serious: Yes (Other)
  Sender: FDA-Public Use
  Company Number: NL-AMGEN-NLDSP2014012601

PATIENT
  Age: 69 Year
  Sex: Female

DRUGS (10)
  1. XGEVA [Suspect]
     Indication: PRODUCT USED FOR UNKNOWN INDICATION
     Dosage: 70 MG, Q4WK
     Route: 058
     Dates: start: 20140122
  2. AFINITOR [Concomitant]
     Dosage: 10 MG, QD
     Route: 065
  3. EXEMESTAAN ACCORD [Concomitant]
     Dosage: 25 MG, QD
     Route: 065
  4. AMLODIPINE [Concomitant]
     Dosage: 10 MG, QD
  5. FUROSEMIDE [Concomitant]
     Dosage: 20 MG, BID
     Route: 065
  6. LANOXIN [Concomitant]
     Dosage: 0.125 MG, QD
     Route: 065
  7. LISINOPRIL [Concomitant]
     Dosage: UNK UNK, QD
  8. METOPROLOL [Concomitant]
     Dosage: 200 MG, QD
     Route: 065
  9. CALCICHEW [Concomitant]
     Dosage: 500 MG, QD
  10. SPIRONOLACTONE [Concomitant]
     Dosage: 12.5 MG, QD
     Route: 065

REACTIONS (4)
  - Cushingoid [Unknown]
  - Ocular hyperaemia [Unknown]
  - Pruritus [Unknown]
  - Dry skin [Unknown]
